FAERS Safety Report 15392242 (Version 3)
Quarter: 2018Q3

REPORT INFORMATION
  Report Type: Spontaneous
  Country: DE (occurrence: DE)
  Receive Date: 20180917
  Receipt Date: 20180919
  Transmission Date: 20181010
  Serious: Yes (Hospitalization, Other)
  Sender: FDA-Public Use
  Company Number: DE-EMD SERONO-E2B_90058004

PATIENT
  Sex: Female

DRUGS (2)
  1. OVITRELLE [Suspect]
     Active Substance: CHORIOGONADOTROPIN ALFA
     Indication: IN VITRO FERTILISATION
     Dosage: ONCE/SINGLE
     Dates: start: 20180430, end: 20180430
  2. CLOMIFEN [Suspect]
     Active Substance: CLOMIPHENE
     Indication: OVULATION INDUCTION
     Dates: start: 20180424, end: 20180428

REACTIONS (3)
  - Dysuria [Recovered/Resolved]
  - Intra-abdominal haemorrhage [Recovered/Resolved]
  - Abdominal pain lower [Recovered/Resolved]

NARRATIVE: CASE EVENT DATE: 20180502
